FAERS Safety Report 4938401-5 (Version None)
Quarter: 2006Q1

REPORT INFORMATION
  Report Type: 
  Country: None (occurrence: None)
  Receive Date: 20060309
  Receipt Date: 20051128
  Transmission Date: 20060701
  Serious: Yes (Hospitalization)
  Sender: FDA-Public Use
  Company Number: US-SANOFI-SYNTHELABO-A03200504056

PATIENT
  Sex: Female
  Weight: 94.8 kg

DRUGS (8)
  1. ELOXATIN [Suspect]
     Indication: RECTAL CANCER
     Route: 042
     Dates: start: 20051101, end: 20051101
  2. XELODA [Concomitant]
     Route: 048
     Dates: start: 20051117, end: 20051219
  3. ANZEMET [Concomitant]
     Dosage: UNK
     Route: 065
  4. DEXAMETHASONE [Concomitant]
     Dosage: UNK
     Route: 065
  5. SYNTHROID [Concomitant]
     Dosage: UNK
     Route: 048
  6. TYLENOL (CAPLET) [Concomitant]
     Dosage: UNK
     Route: 048
  7. VITAMIN E [Concomitant]
     Dosage: UNK
     Route: 048
  8. IRON [Concomitant]
     Dosage: UNK
     Route: 065

REACTIONS (5)
  - ASTHENIA [None]
  - CHILLS [None]
  - HYPOTENSION [None]
  - PYREXIA [None]
  - TREMOR [None]
